FAERS Safety Report 9179588 (Version 1)
Quarter: 2012Q4

REPORT INFORMATION
  Report Type: 
  Country: US (occurrence: US)
  Receive Date: 20121029
  Receipt Date: 20121029
  Transmission Date: 20130627
  Serious: Yes (Hospitalization)
  Sender: FDA-Public Use
  Company Number: US-GLAXOSMITHKLINE-A0867692A

PATIENT
  Age: 54 Year
  Sex: Female
  Weight: 70 kg

DRUGS (16)
  1. TYKERB [Suspect]
     Indication: BREAST CANCER
     Dosage: 1000MG Per day
     Route: 048
     Dates: start: 20100606
  2. HERCEPTIN [Suspect]
     Indication: PRODUCT USED FOR UNKNOWN INDICATION
     Route: 065
  3. OXYCODONE [Concomitant]
  4. ZYRTEC [Concomitant]
  5. VITAMIN D [Concomitant]
  6. MIRALAX [Concomitant]
  7. ONE A DAY WOMEN^S FORMULA [Concomitant]
  8. XANAX [Concomitant]
  9. LISINOPRIL [Concomitant]
  10. DEXAMETHASONE [Concomitant]
  11. PANTOPRAZOLE [Concomitant]
  12. ZOFRAN [Concomitant]
  13. GABAPENTIN [Concomitant]
  14. OXYCONTIN [Concomitant]
  15. POTASSIUM CHLORIDE [Concomitant]
  16. STOOL SOFTENER [Concomitant]

REACTIONS (10)
  - Hip fracture [Unknown]
  - Nausea [Unknown]
  - Frequent bowel movements [Unknown]
  - Rash [Unknown]
  - Milia [Unknown]
  - Dehydration [Unknown]
  - Weight decreased [Unknown]
  - Decreased appetite [Unknown]
  - Vomiting [Unknown]
  - Malaise [Unknown]
